FAERS Safety Report 4881430-0 (Version None)
Quarter: 2005Q4

REPORT INFORMATION
  Report Type: 
  Country: None (occurrence: None)
  Receive Date: 20051209
  Receipt Date: 20050607
  Transmission Date: 20060501
  Serious: Yes (Death, Other)
  Sender: FDA-Public Use
  Company Number: USA-2005-0020545

PATIENT
  Age: 39 Year
  Sex: Female
  Weight: 91.173 kg

DRUGS (11)
  1. OXYCONTIN TALBETS (OXYCODONE HYDROCHLORIDE) [Suspect]
     Indication: PAIN
     Route: 065
  2. OXYCODONE (OXYCODONE) [Suspect]
     Indication: PAIN
     Route: 065
  3. HYDROCODONE BITARTRATE [Suspect]
     Indication: PAIN
     Route: 065
  4. DIAZEPAM [Suspect]
     Route: 065
  5. METHOPHAN (METHORPHAN) [Suspect]
     Route: 065
  6. PAROXETINE (PAROXETINE) [Suspect]
     Route: 065
  7. TRAZODONE (TRAZODONE) [Suspect]
     Route: 065
  8. EPHEDRINE (EPHEDRINE) [Suspect]
     Route: 065
  9. PSEUDOEPHEDRINE HCL [Suspect]
     Route: 065
  10. TRILEPTAL [Suspect]
     Route: 065
  11. NEURONTIN [Concomitant]

REACTIONS (3)
  - COMA [None]
  - DRUG DEPENDENCE [None]
  - OVERDOSE [None]
